FAERS Safety Report 23217903 (Version 1)
Quarter: 2023Q4

REPORT INFORMATION
  Report Type: Spontaneous
  Country: None (occurrence: IT)
  Receive Date: 20231122
  Receipt Date: 20231122
  Transmission Date: 20240110
  Serious: Yes (Hospitalization, Disabling, Other)
  Sender: FDA-Public Use
  Company Number: IT-Harrow Eye-2148554

PATIENT
  Age: 64 Year
  Sex: Male

DRUGS (18)
  1. VERKAZIA [Suspect]
     Active Substance: CYCLOSPORINE
     Indication: Product used for unknown indication
  2. SPIRONOLACTONE [Suspect]
     Active Substance: SPIRONOLACTONE
  3. LOVASTATIN [Suspect]
     Active Substance: LOVASTATIN
  4. TERAZOSIN [Suspect]
     Active Substance: TERAZOSIN HYDROCHLORIDE
  5. ENALAPRIL [Suspect]
     Active Substance: ENALAPRIL
  6. DIGOXIN [Suspect]
     Active Substance: DIGOXIN
  7. SPIRONOLACTONE [Suspect]
     Active Substance: SPIRONOLACTONE
  8. ASPIRIN [Suspect]
     Active Substance: ASPIRIN
  9. PREDNISONE [Suspect]
     Active Substance: PREDNISONE
  10. METFORMIN [Suspect]
     Active Substance: METFORMIN HYDROCHLORIDE
  11. INFLUENZA VIRUS VACCINE [Suspect]
     Active Substance: INFLUENZA VIRUS VACCINE
  12. AZATHIOPRINE [Suspect]
     Active Substance: AZATHIOPRINE
  13. TACROLIMUS [Suspect]
     Active Substance: TACROLIMUS
  14. SIMVASTATIN [Suspect]
     Active Substance: SIMVASTATIN
  15. INSULIN NOS [Suspect]
     Active Substance: INSULIN NOS
  16. GLIPIZIDE [Suspect]
     Active Substance: GLIPIZIDE
  17. CALCITRIOL [Concomitant]
     Active Substance: CALCITRIOL
  18. EZETIMIBE [Concomitant]
     Active Substance: EZETIMIBE

REACTIONS (23)
  - Myopathy [Unknown]
  - Muscular weakness [Unknown]
  - Renal impairment [Unknown]
  - Cardiovascular disorder [Unknown]
  - Myositis [Unknown]
  - Acute kidney injury [Unknown]
  - Hepatic function abnormal [Unknown]
  - Asthenia [Unknown]
  - Pyrexia [Unknown]
  - Proteinuria [Unknown]
  - Dysuria [Unknown]
  - Myasthenic syndrome [Unknown]
  - Renal failure [Unknown]
  - Diabetes mellitus [Unknown]
  - Right ventricular failure [Unknown]
  - Hypertension [Unknown]
  - Hyperbilirubinaemia [Unknown]
  - Condition aggravated [Unknown]
  - Hyperkalaemia [Unknown]
  - Rhabdomyolysis [Unknown]
  - Upper respiratory tract infection [Unknown]
  - Drug interaction [Unknown]
  - Potentiating drug interaction [Unknown]
